FAERS Safety Report 6982665-3 (Version None)
Quarter: 2010Q3

REPORT INFORMATION
  Report Type: 
  Country: None (occurrence: None)
  Receive Date: 20100914
  Receipt Date: 20100416
  Transmission Date: 20110219
  Serious: Yes (Other)
  Sender: FDA-Public Use
  Company Number: US-PFIZER INC-2010025872

PATIENT
  Sex: Female
  Weight: 82.54 kg

DRUGS (5)
  1. LYRICA [Suspect]
     Indication: FIBROMYALGIA
     Dosage: 50 MG, 3X/DAY
     Route: 048
     Dates: start: 20091001
  2. PAXIL [Concomitant]
     Dosage: UNK
  3. KLONOPIN [Concomitant]
     Dosage: UNK
  4. IBUPROFEN [Concomitant]
     Dosage: 800 MG, UNK
  5. SOMA [Concomitant]
     Dosage: UNK

REACTIONS (3)
  - ANXIETY [None]
  - DEPRESSION [None]
  - WEIGHT INCREASED [None]
